FAERS Safety Report 6736669-6 (Version None)
Quarter: 2010Q2

REPORT INFORMATION
  Report Type: 
  Country: None (occurrence: None)
  Receive Date: 20100521
  Receipt Date: 20100510
  Transmission Date: 20101027
  Serious: Yes (Other)
  Sender: FDA-Public Use
  Company Number: PHHY2010US30523

PATIENT
  Sex: Female

DRUGS (2)
  1. ZOMETA [Suspect]
     Dosage: UNK
     Dates: start: 20090701
  2. TAXOTERE [Concomitant]

REACTIONS (5)
  - ABSCESS MANAGEMENT [None]
  - BONE DEBRIDEMENT [None]
  - BONE DISORDER [None]
  - GINGIVAL BLISTER [None]
  - OSTEONECROSIS OF JAW [None]
